FAERS Safety Report 8572615-0 (Version None)
Quarter: 2012Q2

REPORT INFORMATION
  Report Type: 
  Country: None (occurrence: None)
  Receive Date: 20120423
  Receipt Date: 20100319
  Transmission Date: 20120825
  Serious: Yes (Other)
  Sender: FDA-Public Use
  Company Number: PHEH2010US03219

PATIENT
  Age: 39 Year
  Sex: Female
  Weight: 74.8 kg

DRUGS (1)
  1. EXJADE [Suspect]
     Indication: SICKLE CELL ANAEMIA
     Dosage: 750 MG DAILY, OROPHARINGEAL
     Route: 049
     Dates: start: 20060918

REACTIONS (1)
  - RENAL IMPAIRMENT [None]
